FAERS Safety Report 21339443 (Version 3)
Quarter: 2025Q2

REPORT INFORMATION
  Report Type: Spontaneous
  Country: US (occurrence: US)
  Receive Date: 20220915
  Receipt Date: 20250510
  Transmission Date: 20250717
  Serious: No
  Sender: SANOFI AVENTIS
  Company Number: US-SANOFI-01268943

PATIENT
  Age: 73 Year
  Sex: Female

DRUGS (1)
  1. LANTUS SOLOSTAR [Suspect]
     Active Substance: INSULIN GLARGINE
     Indication: Type 2 diabetes mellitus
     Dosage: 60 IU, QD, DURATION:AT LEAST 20 YEARS
     Route: 065

REACTIONS (6)
  - Injection site bruising [Unknown]
  - Cardiac disorder [Unknown]
  - Exostosis of jaw [Unknown]
  - Condition aggravated [Unknown]
  - Visual impairment [Unknown]
  - Product dispensing error [Unknown]
